FAERS Safety Report 23798213 (Version 2)
Quarter: 2024Q2

REPORT INFORMATION
  Report Type: Spontaneous
  Country: BR (occurrence: BR)
  Receive Date: 20240430
  Receipt Date: 20240613
  Transmission Date: 20240716
  Serious: Yes (Hospitalization)
  Sender: FDA-Public Use
  Company Number: BR-Accord-422261

PATIENT
  Age: 78 Year
  Sex: Female
  Weight: 54.2 kg

DRUGS (18)
  1. PACLITAXEL [Suspect]
     Active Substance: PACLITAXEL
     Indication: Malignant melanoma
     Dosage: 486.7 ML
     Route: 042
     Dates: start: 20240205, end: 20240205
  2. BACITRACINE-NEOMYCINE [Concomitant]
     Dosage: 250 IU/G + 5 MG/G, ONCE A DAY
     Route: 061
  3. RIVAROXABAN [Concomitant]
     Active Substance: RIVAROXABAN
     Dosage: ONCE A DAY
     Route: 048
  4. GABAPENTIN [Concomitant]
     Active Substance: GABAPENTIN
     Dosage: 3 TIMES A DAY
     Route: 048
  5. MORPHINE [Concomitant]
     Active Substance: MORPHINE
     Dosage: EVERY 4 HOURS
     Route: 048
  6. POLYETHYLENE GLYCOL [Concomitant]
     Active Substance: POLYETHYLENE GLYCOL
     Dosage: 4000, 14 G SACHET, ONCE A DAY
     Route: 048
  7. DOMPERIDONE [Concomitant]
     Active Substance: DOMPERIDONE
     Dosage: 1 MG/ML, 3 TIMES A DAY
     Route: 048
  8. ONDANSETRON [Concomitant]
     Active Substance: ONDANSETRON
     Dosage: EVERY 8 HOURS
     Route: 042
  9. MORPHINE [Concomitant]
     Active Substance: MORPHINE
     Dosage: EVERY 4 HOURS
     Route: 042
  10. DEXCHLORPHENIRAMINE [Concomitant]
     Active Substance: DEXCHLORPHENIRAMINE
     Dosage: EVERY 8 HOURS
     Route: 048
  11. AMIODARONE [Concomitant]
     Active Substance: AMIODARONE
     Dosage: ONCE A DAY
     Route: 048
  12. ATORVASTATIN [Concomitant]
     Active Substance: ATORVASTATIN
     Dosage: ONCE A DAY
     Route: 048
  13. DEXTROSE [Concomitant]
     Active Substance: DEXTROSE\DEXTROSE MONOHYDRATE
     Dosage: EVERY 4 HOURS
     Route: 042
  14. BROMOPRIDE [Concomitant]
     Active Substance: BROMOPRIDE
     Dosage: EVERY 8 HOURS
     Route: 042
  15. ACETAMINOPHEN [Concomitant]
     Active Substance: ACETAMINOPHEN
     Dosage: EVERY 6 HOURS
     Route: 048
  16. VANCOMYCIN [Concomitant]
     Active Substance: VANCOMYCIN
     Dosage: EVERY 12 HOURS
     Route: 042
  17. BISACODYL [Concomitant]
     Active Substance: BISACODYL
     Dosage: ONCE A DAY
     Route: 048
  18. PACLITAXEL [Suspect]
     Active Substance: PACLITAXEL
     Indication: Malignant melanoma
     Dosage: 486.7 ML
     Route: 042
     Dates: start: 20240227, end: 20240227

REACTIONS (6)
  - Somnolence [Unknown]
  - Confusional state [Unknown]
  - Fatigue [Unknown]
  - Hyperhidrosis [Unknown]
  - Respiratory disorder [Unknown]
  - Oxygen saturation decreased [Unknown]
